FAERS Safety Report 8236015-5 (Version None)
Quarter: 2012Q1

REPORT INFORMATION
  Report Type: 
  Country: None (occurrence: None)
  Receive Date: 20120326
  Receipt Date: 20120316
  Transmission Date: 20120608
  Serious: Yes (Hospitalization)
  Sender: FDA-Public Use
  Company Number: BR-ASTRAZENECA-2012SE18766

PATIENT
  Age: 57 Year
  Sex: Male
  Weight: 87 kg

DRUGS (8)
  1. ASPIRIN [Concomitant]
     Route: 048
     Dates: start: 19980101
  2. ATENOLOL [Suspect]
     Route: 048
     Dates: start: 20080101
  3. CLOPIDOGREL [Suspect]
     Indication: CHEST PAIN
     Route: 048
  4. ISOSORBIDE MONONITRATE [Suspect]
     Route: 065
     Dates: start: 20080101
  5. DIOVAN [Concomitant]
     Route: 048
     Dates: start: 19980101
  6. CRESTOR [Suspect]
     Indication: BLOOD CHOLESTEROL INCREASED
     Route: 048
     Dates: end: 20080101
  7. CRESTOR [Suspect]
     Route: 048
     Dates: start: 20080101
  8. EZETIMIBE [Suspect]
     Route: 065
     Dates: start: 20080101

REACTIONS (3)
  - CHEST PAIN [None]
  - MYOCARDIAL INFARCTION [None]
  - INAPPROPRIATE SCHEDULE OF DRUG ADMINISTRATION [None]
